FAERS Safety Report 6196225-8 (Version None)
Quarter: 2009Q2

REPORT INFORMATION
  Report Type: 
  Country: None (occurrence: None)
  Receive Date: 20090520
  Receipt Date: 20070719
  Transmission Date: 20091009
  Serious: Yes (Hospitalization)
  Sender: FDA-Public Use
  Company Number: US-ASTRAZENECA-2006UW23531

PATIENT
  Age: 14558 Day
  Sex: Male
  Weight: 88 kg

DRUGS (30)
  1. SEROQUEL [Suspect]
     Dosage: 25MG-300MG
     Route: 048
     Dates: start: 20020124
  2. SEROQUEL [Suspect]
     Route: 048
  3. ZYPREXA [Concomitant]
     Dosage: 5MG - 20 MG
     Route: 065
  4. ACTOS [Concomitant]
     Route: 065
  5. ABILIFY [Concomitant]
     Indication: NEUROPATHY PERIPHERAL
     Route: 065
  6. LYRICA [Concomitant]
     Indication: NEUROPATHY PERIPHERAL
     Route: 065
  7. VICODIN [Concomitant]
     Indication: NAUSEA
     Route: 048
  8. VICODIN [Concomitant]
     Indication: PAIN
     Route: 048
  9. AMBIEN [Concomitant]
     Indication: INSOMNIA
     Route: 048
  10. GABAPENTIN [Concomitant]
     Route: 048
  11. DEMEROL [Concomitant]
     Route: 042
  12. DIPRIVAN IV [Concomitant]
     Route: 042
  13. LEVOFLOXACIN [Concomitant]
     Route: 048
  14. VERSED IV [Concomitant]
     Route: 042
  15. REGLAN [Concomitant]
     Indication: NAUSEA
     Route: 042
  16. REGLAN [Concomitant]
     Indication: VOMITING
     Route: 042
  17. METHYLPREDNISOLONE [Concomitant]
     Route: 065
  18. DARVOCET [Concomitant]
     Route: 065
  19. DEPAKOTE [Concomitant]
     Dosage: 100MG-125MG
     Route: 048
  20. PROPRANOLOL [Concomitant]
     Dosage: 20-40MG
     Route: 048
  21. CLONAZEPAM [Concomitant]
     Dosage: 0.5MG - 2 MG
     Route: 048
  22. GLUCOPHAGE [Concomitant]
     Route: 048
  23. CODEINE [Concomitant]
     Route: 065
  24. SKELAXIN [Concomitant]
     Route: 048
  25. TIZANIDINE HCL [Concomitant]
     Route: 048
  26. CYCLOBENZAPRINE [Concomitant]
     Route: 048
  27. ALPRAZOLAM [Concomitant]
     Indication: ANXIETY
     Dosage: 0.5MG-1MG
     Route: 048
  28. HYDROMORPHONE HCL [Concomitant]
     Dosage: 2MG - 8MG
     Route: 065
  29. INVANZ [Concomitant]
     Route: 065
  30. NOVOLIN [Concomitant]
     Route: 058

REACTIONS (28)
  - ABSCESS [None]
  - ANIMAL BITE [None]
  - ARTHRALGIA [None]
  - BIPOLAR DISORDER [None]
  - BOWEL PREPARATION [None]
  - CELLULITIS [None]
  - CHEST PAIN [None]
  - DIABETES MELLITUS [None]
  - DYSPHAGIA [None]
  - EROSIVE OESOPHAGITIS [None]
  - FACIAL PAIN [None]
  - FATIGUE [None]
  - GASTRITIS [None]
  - HAEMORRHOIDS [None]
  - HALLUCINATION [None]
  - HIATUS HERNIA [None]
  - HYPERTENSION [None]
  - IMPAIRED GASTRIC EMPTYING [None]
  - INJURY [None]
  - MORTON'S NEUROMA [None]
  - MUSCLE SPASMS [None]
  - MUSCULOSKELETAL PAIN [None]
  - OVERDOSE [None]
  - PAIN IN EXTREMITY [None]
  - POLYP COLORECTAL [None]
  - PSYCHIATRIC EVALUATION [None]
  - SCHIZOAFFECTIVE DISORDER [None]
  - WOUND [None]
